FAERS Safety Report 8664168 (Version 3)
Quarter: 2013Q1

REPORT INFORMATION
  Report Type: Spontaneous
  Country: US (occurrence: US)
  Receive Date: 20120713
  Receipt Date: 20130320
  Transmission Date: 20140127
  Serious: Yes (Other)
  Sender: FDA-Public Use
  Company Number: US-ALEXION-A201200671

PATIENT
  Age: 50 Year
  Sex: Male

DRUGS (9)
  1. SOLIRIS 300MG [Suspect]
     Indication: PAROXYSMAL NOCTURNAL HAEMOGLOBINURIA
     Dosage: 600 MG, QW
     Route: 042
     Dates: start: 20110819
  2. SOLIRIS 300MG [Suspect]
     Dosage: 900 MG, Q2W
     Route: 042
     Dates: start: 20110914
  3. SOLIRIS 300MG [Suspect]
     Dosage: 600 MG, QW
     Route: 042
     Dates: start: 20111107
  4. SOLIRIS 300MG [Suspect]
     Dosage: 1200 MG, Q2W
     Route: 042
     Dates: start: 20120327
  5. SOLIRIS 300MG [Suspect]
     Dosage: 600 MG, QW
     Route: 042
     Dates: start: 20120410
  6. SOLIRIS 300MG [Suspect]
     Dosage: 900 MG, QW
     Route: 042
     Dates: start: 20120508
  7. ASPIRIN [Concomitant]
     Dosage: 81 MG, QD
     Route: 048
  8. FOLIC ACID [Concomitant]
     Dosage: 1 MG, QD
     Route: 048
  9. GLEEVEC [Concomitant]

REACTIONS (2)
  - Chronic myeloid leukaemia [Not Recovered/Not Resolved]
  - Haemolysis [Not Recovered/Not Resolved]
